FAERS Safety Report 5070040-0 (Version None)
Quarter: 2006Q3

REPORT INFORMATION
  Report Type: 
  Country: None (occurrence: None)
  Receive Date: 20060731
  Receipt Date: 20060703
  Transmission Date: 20061208
  Serious: Yes (Other)
  Sender: FDA-Public Use
  Company Number: 2006088400

PATIENT
  Age: 42 Year
  Sex: Male

DRUGS (6)
  1. LYRICA [Suspect]
     Indication: GENERALISED ANXIETY DISORDER
     Dosage: 450 MG (1 IN 1 D)
  2. CLOPAZINE (CLOPAZINE) [Suspect]
     Indication: DRUG USE FOR UNKNOWN INDICATION
  3. CLOZARIL [Concomitant]
  4. HALOPERIDOL [Concomitant]
  5. LORAZEPAM [Concomitant]
  6. .. [Concomitant]

REACTIONS (8)
  - ANXIETY [None]
  - DEPRESSION [None]
  - FATIGUE [None]
  - FEAR [None]
  - PARASOMNIA [None]
  - SLEEP WALKING [None]
  - SOCIAL AVOIDANT BEHAVIOUR [None]
  - UNEVALUABLE EVENT [None]
